FAERS Safety Report 17565320 (Version 1)
Quarter: 2020Q1

REPORT INFORMATION
  Report Type: Spontaneous
  Country: US (occurrence: US)
  Receive Date: 20200320
  Receipt Date: 20200320
  Transmission Date: 20200409
  Serious: Yes (Disabling)
  Sender: FDA-Public Use
  Company Number: None

PATIENT
  Age: 9 Year
  Sex: Female
  Weight: 32.4 kg

DRUGS (2)
  1. IBUPROFEN. [Concomitant]
     Active Substance: IBUPROFEN
  2. OSELTAMIVIR [Suspect]
     Active Substance: OSELTAMIVIR
     Indication: INFLUENZA
     Dosage: ?          QUANTITY:10 MILLILITER;?
     Route: 048
     Dates: start: 20200313, end: 20200317

REACTIONS (3)
  - Anxiety [None]
  - Hallucination, visual [None]
  - Respiratory rate increased [None]

NARRATIVE: CASE EVENT DATE: 20200314
